FAERS Safety Report 9447208 (Version 2)
Quarter: 2013Q3

REPORT INFORMATION
  Report Type: Spontaneous
  Country: US (occurrence: US)
  Receive Date: 20130807
  Receipt Date: 20130927
  Transmission Date: 20140515
  Serious: No
  Sender: FDA-Public Use
  Company Number: US-009507513-1307USA015262

PATIENT
  Age: 26 Year
  Sex: Female
  Weight: 81.18 kg

DRUGS (1)
  1. IMPLANON [Suspect]
     Indication: CONTRACEPTION
     Dosage: UNK
     Route: 059
     Dates: start: 201211

REACTIONS (5)
  - Device difficult to use [Not Recovered/Not Resolved]
  - Menstruation irregular [Unknown]
  - Device deployment issue [Unknown]
  - Medical device complication [Unknown]
  - General anaesthesia [Unknown]
